FAERS Safety Report 10992432 (Version 1)
Quarter: 2015Q2

REPORT INFORMATION
  Report Type: Spontaneous
  Country: PT (occurrence: PT)
  Receive Date: 20150406
  Receipt Date: 20150406
  Transmission Date: 20150821
  Serious: Yes (Hospitalization, Disabling, Other)
  Sender: FDA-Public Use
  Company Number: PT-009507513-1502PRT010594

PATIENT
  Age: 69 Year
  Sex: Male

DRUGS (18)
  1. BOTULINUM TOXIN TYPE A [Suspect]
     Active Substance: BOTULINUM TOXIN TYPE A
     Dosage: NEW DOSE ADMINISTERED
     Dates: start: 20150121
  2. BOTULINUM TOXIN TYPE A [Suspect]
     Active Substance: BOTULINUM TOXIN TYPE A
     Dosage: UNK
     Dates: start: 201411
  3. ATORVASTATIN [Concomitant]
     Active Substance: ATORVASTATIN
     Dosage: UNK
  4. CENTRUM (CYTIDINE (+) URIDINE) [Concomitant]
     Dosage: UNK
  5. SINEMET CR [Suspect]
     Active Substance: CARBIDOPA\LEVODOPA
     Dosage: STRENGTH 50/200, DOSE INCREASED 1+1+1
     Route: 048
     Dates: start: 201412
  6. VALIUM [Concomitant]
     Active Substance: DIAZEPAM
     Dosage: UNK
  7. EFFEXOR [Concomitant]
     Active Substance: VENLAFAXINE HYDROCHLORIDE
     Dosage: UNK
  8. BACLOFEN. [Concomitant]
     Active Substance: BACLOFEN
     Dosage: 100 MG, QD
     Dates: start: 20150108
  9. SINEMET CR [Suspect]
     Active Substance: CARBIDOPA\LEVODOPA
     Dosage: UNK UNK, HS
     Route: 048
     Dates: start: 20150108
  10. ZYRTEC [Concomitant]
     Active Substance: CETIRIZINE HYDROCHLORIDE
     Dosage: UNK
  11. SINEMET [Suspect]
     Active Substance: CARBIDOPA\LEVODOPA
     Dosage: TWO 25/100 TABLETS THREE TIMES DAILY
     Dates: start: 201502
  12. RIVOTRIL [Concomitant]
     Active Substance: CLONAZEPAM
     Dosage: UNK
     Dates: start: 20150221
  13. SINEMET CR [Suspect]
     Active Substance: CARBIDOPA\LEVODOPA
     Indication: PARKINSON^S DISEASE
     Dosage: STRENGTH-50/200
     Route: 048
     Dates: start: 2012
  14. NEBIVOLOL [Concomitant]
     Active Substance: NEBIVOLOL
  15. BACLOFEN. [Concomitant]
     Active Substance: BACLOFEN
     Dosage: 75 MG, QD
  16. SINEMET CR [Suspect]
     Active Substance: CARBIDOPA\LEVODOPA
     Indication: PROGRESSIVE SUPRANUCLEAR PALSY
     Dosage: UNK
     Route: 048
     Dates: start: 2014
  17. SINEMET [Suspect]
     Active Substance: CARBIDOPA\LEVODOPA
     Indication: PROGRESSIVE SUPRANUCLEAR PALSY
     Dosage: UNK UNK, Q4H, TOTAL DAILY DOSE 100+1000MG
     Route: 048
     Dates: start: 20150108, end: 201502
  18. CODIOVAN FORTE [Concomitant]
     Active Substance: HYDROCHLOROTHIAZIDE\VALSARTAN
     Dosage: UNK

REACTIONS (4)
  - Muscle spasms [Recovering/Resolving]
  - Muscle rigidity [Recovering/Resolving]
  - Paradoxical drug reaction [Unknown]
  - Pneumonia [Unknown]

NARRATIVE: CASE EVENT DATE: 201411
